FAERS Safety Report 12840431 (Version 1)
Quarter: 2016Q4

REPORT INFORMATION
  Report Type: Spontaneous
  Country: US (occurrence: US)
  Receive Date: 20161012
  Receipt Date: 20161012
  Transmission Date: 20170207
  Serious: No
  Sender: FDA-Public Use
  Company Number: US-JUBILANT CADISTA PHARMACEUTICALS-2016JUB00164

PATIENT
  Age: 55 Year
  Sex: Female
  Weight: 64.85 kg

DRUGS (7)
  1. HERBAL TEA [Concomitant]
     Dosage: UNK
  2. ESTRADIOL TRANSDERMAL SYSTEM [Concomitant]
     Active Substance: ESTRADIOL
     Dosage: 0.05 MG, 2X/WEEK
     Route: 062
  3. MEDROXYPROGESTERONE [Concomitant]
     Active Substance: MEDROXYPROGESTERONE
     Dosage: 2.5 MG, 1X/DAY
  4. ALEVE [Concomitant]
     Active Substance: NAPROXEN SODIUM
  5. LORATADINE. [Concomitant]
     Active Substance: LORATADINE
     Dosage: 10 MG, 1X/DAY
  6. PREDNISONE. [Suspect]
     Active Substance: PREDNISONE
     Indication: RASH
     Dosage: 20 MG, 1X/DAY
     Route: 048
     Dates: start: 20160420, end: 20160420
  7. PREDNISONE. [Suspect]
     Active Substance: PREDNISONE
     Indication: SWELLING FACE
     Dosage: 30 MG, 1X/DAY
     Route: 048
     Dates: start: 20160418, end: 20160419

REACTIONS (4)
  - Abdominal pain upper [Recovered/Resolved]
  - Dyspepsia [Recovered/Resolved]
  - Abdominal discomfort [Not Recovered/Not Resolved]
  - Rash [Recovering/Resolving]

NARRATIVE: CASE EVENT DATE: 20160418
